FAERS Safety Report 5928351-X (Version None)
Quarter: 2008Q4

REPORT INFORMATION
  Report Type: 
  Country: None (occurrence: None)
  Receive Date: 20081023
  Receipt Date: 20081013
  Transmission Date: 20090506
  Serious: Yes (Hospitalization, Other)
  Sender: FDA-Public Use
  Company Number: GB-PFIZER INC-2007097608

PATIENT
  Sex: Female
  Weight: 72 kg

DRUGS (5)
  1. SUTENT [Suspect]
     Indication: BREAST CANCER METASTATIC
     Route: 048
     Dates: start: 20071116, end: 20071119
  2. DOCETAXEL [Suspect]
     Indication: BREAST CANCER METASTATIC
     Dosage: DAILY DOSE:140MG-FREQ:EVERY 3 WEEKS
     Route: 042
     Dates: start: 20071115, end: 20071115
  3. DEXAMETHASONE [Concomitant]
     Route: 048
     Dates: start: 20071114, end: 20071116
  4. DOMPERIDONE [Concomitant]
     Route: 048
     Dates: start: 20071116
  5. ONDANSETRON [Concomitant]
     Route: 048
     Dates: start: 20071115

REACTIONS (14)
  - BLOOD CREATININE DECREASED [None]
  - BLOOD PRESSURE DECREASED [None]
  - BLOOD SODIUM DECREASED [None]
  - BLOOD UREA INCREASED [None]
  - C-REACTIVE PROTEIN INCREASED [None]
  - DYSPEPSIA [None]
  - DYSURIA [None]
  - LYMPHOCYTE COUNT DECREASED [None]
  - MONOCYTE COUNT DECREASED [None]
  - NEUTROPENIC SEPSIS [None]
  - NEUTROPHIL COUNT INCREASED [None]
  - URINE ABNORMALITY [None]
  - VOMITING [None]
  - WHITE BLOOD CELL COUNT DECREASED [None]
